FAERS Safety Report 7000312-1 (Version None)
Quarter: 2010Q3

REPORT INFORMATION
  Report Type: 
  Country: None (occurrence: None)
  Receive Date: 20100920
  Receipt Date: 20100601
  Transmission Date: 20110219
  Serious: No
  Sender: FDA-Public Use
  Company Number: US-ASTRAZENECA-2010SE25200

PATIENT
  Age: 54 Year
  Sex: Male
  Weight: 168.7 kg

DRUGS (8)
  1. SEROQUEL [Suspect]
     Indication: BIPOLAR DISORDER
     Dosage: 50 MG IN MIDDLE OF THE DAY AND 300 MG AT BEDTIME
     Route: 048
  2. SEROQUEL [Suspect]
     Indication: SCHIZOPHRENIA
     Dosage: 50 MG IN MIDDLE OF THE DAY AND 300 MG AT BEDTIME
     Route: 048
  3. SEROQUEL [Suspect]
     Indication: SUICIDAL IDEATION
     Dosage: 50 MG IN MIDDLE OF THE DAY AND 300 MG AT BEDTIME
     Route: 048
  4. CELEXA [Concomitant]
  5. LORCET-HD [Concomitant]
  6. XANAX [Concomitant]
  7. LASIX [Concomitant]
  8. POTASSIUM [Concomitant]

REACTIONS (8)
  - DRUG DOSE OMISSION [None]
  - HEADACHE [None]
  - INSOMNIA [None]
  - IRRITABILITY [None]
  - NAUSEA [None]
  - TREMOR [None]
  - VOMITING [None]
  - WRONG TECHNIQUE IN DRUG USAGE PROCESS [None]
